FAERS Safety Report 13133076 (Version 1)
Quarter: 2017Q1

REPORT INFORMATION
  Report Type: Spontaneous
  Country: US (occurrence: US)
  Receive Date: 20170118
  Receipt Date: 20170118
  Transmission Date: 20170428
  Serious: Yes (Other)
  Sender: FDA-Public Use
  Company Number: None

PATIENT
  Age: 80 Year
  Sex: Male

DRUGS (1)
  1. ZYTIGA [Suspect]
     Active Substance: ABIRATERONE ACETATE
     Indication: PROSTATE CANCER
     Route: 048
     Dates: start: 20161102

REACTIONS (4)
  - Dizziness [None]
  - Rhinorrhoea [None]
  - Pulmonary congestion [None]
  - Nasopharyngitis [None]

NARRATIVE: CASE EVENT DATE: 20161225
